FAERS Safety Report 22184534 (Version 1)
Quarter: 2023Q2

REPORT INFORMATION
  Report Type: Other
  Country: JP (occurrence: JP)
  Receive Date: 20230407
  Receipt Date: 20230407
  Transmission Date: 20230721
  Serious: Yes (Hospitalization, Other)
  Sender: FDA-Public Use
  Company Number: JP-CHUGAI-2021021921

PATIENT
  Age: 73 Year
  Sex: Male
  Weight: 57 kg

DRUGS (4)
  1. ATEZOLIZUMAB [Suspect]
     Active Substance: ATEZOLIZUMAB
     Indication: Lung adenocarcinoma
     Dosage: MOST RECENT DOSE: 27/AUG/2021?1200 MILLIGRAM, ONCE/3WEEKS
     Route: 041
     Dates: start: 20210806
  2. CARBOPLATIN [Concomitant]
     Active Substance: CARBOPLATIN
     Indication: Lung adenocarcinoma
     Route: 041
     Dates: start: 20210806, end: 20210827
  3. PACLITAXEL [Concomitant]
     Active Substance: PACLITAXEL
     Indication: Lung adenocarcinoma
     Route: 041
     Dates: start: 20210806, end: 20210827
  4. PACLITAXEL [Concomitant]
     Active Substance: PACLITAXEL
     Route: 041
     Dates: end: 20210910

REACTIONS (6)
  - White blood cell count decreased [Recovered/Resolved]
  - Neutrophil count decreased [Recovered/Resolved]
  - Anaemia [Recovering/Resolving]
  - Interstitial lung disease [Not Recovered/Not Resolved]
  - Decreased appetite [Recovered/Resolved]
  - Stomatitis [Unknown]

NARRATIVE: CASE EVENT DATE: 20210807
